FAERS Safety Report 23819154 (Version 1)
Quarter: 2024Q2

REPORT INFORMATION
  Report Type: Other
  Country: FR (occurrence: None)
  Receive Date: 20240506
  Receipt Date: 20240506
  Transmission Date: 20240716
  Serious: Yes (Other)
  Sender: FDA-Public Use
  Company Number: FR-ROCHE-3555331

PATIENT

DRUGS (2)
  1. RITUXIMAB [Suspect]
     Active Substance: RITUXIMAB
     Indication: VEXAS syndrome
     Route: 065
  2. MYCOPHENOLATE MOFETIL [Suspect]
     Active Substance: MYCOPHENOLATE MOFETIL
     Indication: VEXAS syndrome
     Route: 065

REACTIONS (8)
  - JC virus infection [Unknown]
  - COVID-19 [Unknown]
  - Skin infection [Unknown]
  - Urinary tract infection [Unknown]
  - Haematological infection [Unknown]
  - Mycobacterium avium complex infection [Unknown]
  - Salmonellosis [Unknown]
  - Listeriosis [Unknown]
